FAERS Safety Report 8440104-X (Version None)
Quarter: 2012Q2

REPORT INFORMATION
  Report Type: 
  Country: None (occurrence: None)
  Receive Date: 20120615
  Receipt Date: 20120605
  Transmission Date: 20120825
  Serious: Yes (Hospitalization, Other)
  Sender: FDA-Public Use
  Company Number: US-ELI_LILLY_AND_COMPANY-US201111009035

PATIENT
  Sex: Female
  Weight: 91.6 kg

DRUGS (2)
  1. FORTEO [Suspect]
     Dosage: UNK UNK, UNKNOWN
     Route: 065
  2. FORTEO [Suspect]
     Indication: OSTEOPOROSIS
     Dosage: UNK, UNKNOWN

REACTIONS (4)
  - THROMBOSIS [None]
  - BACK PAIN [None]
  - DIZZINESS [None]
  - KNEE ARTHROPLASTY [None]
